FAERS Safety Report 15051747 (Version 4)
Quarter: 2018Q4

REPORT INFORMATION
  Report Type: Spontaneous
  Country: US (occurrence: US)
  Receive Date: 20180622
  Receipt Date: 20181218
  Transmission Date: 20190204
  Serious: Yes (Disabling)
  Sender: FDA-Public Use
  Company Number: US-OTSUKA-2018_016143

PATIENT
  Sex: Female
  Weight: 111.2 kg

DRUGS (12)
  1. ALBUTEROL SULFATE. [Concomitant]
     Active Substance: ALBUTEROL SULFATE
     Indication: PRODUCT USED FOR UNKNOWN INDICATION
     Dosage: INHALE 2 PUFF BY INHALATION ROUTE EVERY 4-6 HOURS AS NEEDED
     Route: 065
  2. ALPRAZOLAM. [Concomitant]
     Active Substance: ALPRAZOLAM
     Indication: PRODUCT USED FOR UNKNOWN INDICATION
     Dosage: 1 DF, TID
     Route: 048
     Dates: start: 20130318
  3. LAMICTAL [Concomitant]
     Active Substance: LAMOTRIGINE
     Indication: PRODUCT USED FOR UNKNOWN INDICATION
     Dosage: 1 DF, BID
     Route: 048
     Dates: start: 20130318
  4. LEVOTHYROXINE. [Concomitant]
     Active Substance: LEVOTHYROXINE
     Indication: PRODUCT USED FOR UNKNOWN INDICATION
     Dosage: 1 DF, QD
     Route: 048
     Dates: start: 20130322
  5. TOPIRAMATE. [Concomitant]
     Active Substance: TOPIRAMATE
     Indication: PRODUCT USED FOR UNKNOWN INDICATION
     Dosage: 1 DF, BID
     Route: 048
     Dates: start: 20130322
  6. ABILIFY [Suspect]
     Active Substance: ARIPIPRAZOLE
     Dosage: 5 MG, QD
     Route: 048
  7. SEROQUEL [Concomitant]
     Active Substance: QUETIAPINE FUMARATE
     Indication: PRODUCT USED FOR UNKNOWN INDICATION
     Dosage: 3 DF, QD (BED TIME)
     Route: 048
     Dates: start: 20130322
  8. ABILIFY [Suspect]
     Active Substance: ARIPIPRAZOLE
     Indication: BIPOLAR DISORDER
     Dosage: 15 MG, QD
     Route: 065
     Dates: start: 2006
  9. IBUPROFEN. [Concomitant]
     Active Substance: IBUPROFEN
     Indication: PRODUCT USED FOR UNKNOWN INDICATION
     Dosage: 1 DF, TID (WITH FOOD)
     Route: 048
     Dates: start: 20130318
  10. LORATADINE. [Concomitant]
     Active Substance: LORATADINE
     Indication: PRODUCT USED FOR UNKNOWN INDICATION
     Dosage: 1 DF, QD
     Route: 048
     Dates: start: 20130322
  11. ABILIFY [Suspect]
     Active Substance: ARIPIPRAZOLE
     Dosage: 30 MG, QD
     Route: 065
     Dates: end: 2015
  12. QVAR [Concomitant]
     Active Substance: BECLOMETHASONE DIPROPIONATE
     Indication: PRODUCT USED FOR UNKNOWN INDICATION
     Dosage: 80 MCG/ACTUATION AEROSOL INHALER, BID
     Route: 065

REACTIONS (16)
  - Mean cell haemoglobin decreased [Unknown]
  - Disability [Unknown]
  - Anhedonia [Unknown]
  - Mean cell haemoglobin concentration decreased [Unknown]
  - Emotional distress [Unknown]
  - Pain [Unknown]
  - Injury [Unknown]
  - Compulsive shopping [Recovered/Resolved]
  - Gambling disorder [Recovered/Resolved]
  - Condition aggravated [Unknown]
  - Economic problem [Unknown]
  - Red blood cell count increased [Unknown]
  - Blood thyroid stimulating hormone decreased [Unknown]
  - Eating disorder [Recovered/Resolved]
  - Blood glucose increased [Unknown]
  - Anxiety [Unknown]

NARRATIVE: CASE EVENT DATE: 20130322
